FAERS Safety Report 7272921-6 (Version None)
Quarter: 2011Q1

REPORT INFORMATION
  Report Type: 
  Country: None (occurrence: None)
  Receive Date: 20110203
  Receipt Date: 20110124
  Transmission Date: 20110831
  Serious: Yes (Death)
  Sender: FDA-Public Use
  Company Number: US-MYLANLABS-2010S1022702

PATIENT
  Age: 30 Year
  Sex: Female
  Weight: 49.9 kg

DRUGS (2)
  1. METHADONE HYDROCHLORIDE [Suspect]
  2. FENTANYL TRANSDERMAL SYSTEM [Suspect]
     Route: 042

REACTIONS (3)
  - INCORRECT ROUTE OF DRUG ADMINISTRATION [None]
  - OVERDOSE [None]
  - INTENTIONAL DRUG MISUSE [None]
